FAERS Safety Report 21044847 (Version 5)
Quarter: 2022Q3

REPORT INFORMATION
  Report Type: Report from Study
  Country: DE (occurrence: None)
  Receive Date: 20220705
  Receipt Date: 20220822
  Transmission Date: 20221027
  Serious: Yes (Hospitalization)
  Sender: FDA-Public Use
  Company Number: DE-Eisai Medical Research-EC-2022-118293

PATIENT
  Age: 78 Year
  Sex: Male
  Weight: 90 kg

DRUGS (15)
  1. LENVATINIB [Suspect]
     Active Substance: LENVATINIB
     Indication: Clear cell renal cell carcinoma
     Dosage: STARTING DOSE AT 20 MG, FLUCTUATED DOSAGE
     Route: 048
     Dates: start: 20220322, end: 20220621
  2. LENVATINIB [Suspect]
     Active Substance: LENVATINIB
     Route: 048
     Dates: start: 20220708
  3. QUAVONLIMAB [Suspect]
     Active Substance: QUAVONLIMAB
     Indication: Clear cell renal cell carcinoma
     Dosage: MK-1308A (MK-1308 25MG + PEMBROLIZUMAB 400MG)
     Route: 041
     Dates: start: 20220322, end: 20220621
  4. PREGABALIN [Concomitant]
     Active Substance: PREGABALIN
     Dates: start: 20200101
  5. LEVODOPA [Concomitant]
     Active Substance: LEVODOPA
     Dates: start: 202001
  6. BENSERAZIDE [Concomitant]
     Active Substance: BENSERAZIDE
     Dates: start: 202001
  7. PERINDOPRIL [Concomitant]
     Active Substance: PERINDOPRIL
     Dates: start: 202001
  8. INDAPAMIDE [Concomitant]
     Active Substance: INDAPAMIDE
     Dates: start: 202001
  9. DIPYRONE [Concomitant]
     Active Substance: DIPYRONE
     Dates: start: 202001
  10. LERCANIDIPINE [Concomitant]
     Active Substance: LERCANIDIPINE
     Dates: start: 20220520
  11. BUDESONIDE [Concomitant]
     Active Substance: BUDESONIDE
     Dates: start: 20220520, end: 20220701
  12. ONDANSETRON [Concomitant]
     Active Substance: ONDANSETRON
     Dates: start: 20220602, end: 20220614
  13. LOPERAMIDE [Concomitant]
     Active Substance: LOPERAMIDE
     Dates: start: 20220602
  14. SALIVA NATURA [Concomitant]
     Dates: start: 20220614
  15. PEMBROLIZUMAB [Suspect]
     Active Substance: PEMBROLIZUMAB

REACTIONS (1)
  - Colitis [Recovered/Resolved]

NARRATIVE: CASE EVENT DATE: 20220627
